FAERS Safety Report 16543777 (Version 1)
Quarter: 2019Q3

REPORT INFORMATION
  Report Type: Spontaneous
  Country: US (occurrence: US)
  Receive Date: 20190709
  Receipt Date: 20190709
  Transmission Date: 20191004
  Serious: No
  Sender: FDA-Public Use
  Company Number: US-SUNOVION-2019SUN002745

PATIENT
  Weight: 43.54 kg

DRUGS (1)
  1. XOPENEX [Suspect]
     Active Substance: LEVALBUTEROL HYDROCHLORIDE
     Route: 055

REACTIONS (4)
  - Oral pain [Unknown]
  - Oral mucosal eruption [Unknown]
  - Candida infection [Unknown]
  - Eating disorder [Unknown]
